FAERS Safety Report 21842034 (Version 1)
Quarter: 2023Q1

REPORT INFORMATION
  Report Type: Spontaneous
  Country: US (occurrence: US)
  Receive Date: 20230110
  Receipt Date: 20230110
  Transmission Date: 20230418
  Serious: No
  Sender: FDA-Public Use
  Company Number: US-JNJFOC-20230104108

PATIENT
  Age: 1 Year
  Sex: Male

DRUGS (1)
  1. MOTRIN INFANTS [Suspect]
     Active Substance: IBUPROFEN
     Indication: Accidental exposure to product
     Route: 048

REACTIONS (2)
  - Accidental exposure to product by child [Unknown]
  - Failure of child resistant product closure [Unknown]
